FAERS Safety Report 9855666 (Version 1)
Quarter: 2014Q1

REPORT INFORMATION
  Report Type: Spontaneous
  Country: US (occurrence: None)
  Receive Date: 20140129
  Receipt Date: 20140129
  Transmission Date: 20141002
  Serious: Yes (Disabling, Other)
  Sender: FDA-Public Use
  Company Number: None

PATIENT
  Age: 52 Year
  Sex: Female
  Weight: 58.97 kg

DRUGS (11)
  1. HYDROCORTISONE [Suspect]
     Indication: ADDISON^S DISEASE
     Dosage: UP TO 10 TABLETS A DAY 5 DOES A DAY TAKEN BY MOUTH
     Route: 048
  2. CYTOMEL [Concomitant]
  3. KLOR-CON [Concomitant]
  4. PROGESTERONE [Concomitant]
  5. BI-EST CREAM [Concomitant]
  6. TESTOSTERONE [Concomitant]
  7. CLONAZEPAM(FOR SLEEP ONLY AM CURRENTLY TAPERING OFF OF) [Concomitant]
  8. MAGNESIUM [Concomitant]
  9. VITAMIN C [Concomitant]
  10. ASHWAGANDA(FOR ADRENAL SUPPORT) [Concomitant]
  11. LICORICE ROOT [Concomitant]

REACTIONS (3)
  - Adrenal insufficiency [None]
  - Condition aggravated [None]
  - Product substitution issue [None]
